FAERS Safety Report 19059517 (Version 1)
Quarter: 2021Q1

REPORT INFORMATION
  Report Type: Spontaneous
  Country: EG (occurrence: EG)
  Receive Date: 20210326
  Receipt Date: 20210326
  Transmission Date: 20210420
  Serious: Yes (Death, Other)
  Sender: FDA-Public Use
  Company Number: EG-SA-2021SA101106

PATIENT
  Age: 21 Year
  Sex: Male
  Weight: 50 kg

DRUGS (1)
  1. CEREZYME [Suspect]
     Active Substance: IMIGLUCERASE
     Indication: GAUCHER^S DISEASE TYPE III
     Dosage: 60 IU, QOW
     Route: 042
     Dates: start: 20020518, end: 20210304

REACTIONS (2)
  - Cardio-respiratory arrest [Fatal]
  - Choking [Fatal]

NARRATIVE: CASE EVENT DATE: 20210317
